FAERS Safety Report 17073617 (Version 1)
Quarter: 2019Q4

REPORT INFORMATION
  Report Type: Spontaneous
  Country: JP (occurrence: JP)
  Receive Date: 20191126
  Receipt Date: 20191126
  Transmission Date: 20200122
  Serious: Yes (Death, Hospitalization, Other)
  Sender: FDA-Public Use
  Company Number: JP-ACTELION-A-CH2019-198402

PATIENT
  Age: 50 Year
  Sex: Male

DRUGS (4)
  1. EPOPROSTENOL SODIUM. [Suspect]
     Active Substance: EPOPROSTENOL SODIUM
     Indication: PULMONARY ARTERIAL HYPERTENSION
     Dosage: 2 NG/KG, PER MIN
     Route: 042
  2. OXYGEN. [Concomitant]
     Active Substance: OXYGEN
     Dosage: 10 L, PER MIN
  3. IMATINIB. [Concomitant]
     Active Substance: IMATINIB MESYLATE
  4. TADALAFIL. [Concomitant]
     Active Substance: TADALAFIL

REACTIONS (8)
  - Cardiac failure [Fatal]
  - Pulmonary veno-occlusive disease [Unknown]
  - Pulmonary alveolar haemorrhage [Fatal]
  - Pulmonary capillary haemangiomatosis [Unknown]
  - Oxygen saturation decreased [Fatal]
  - Pulmonary oedema [Unknown]
  - Haemoptysis [Fatal]
  - Infection [Fatal]
